FAERS Safety Report 10241639 (Version 1)
Quarter: 2014Q2

REPORT INFORMATION
  Report Type: Spontaneous
  Country: US (occurrence: US)
  Receive Date: 20140617
  Receipt Date: 20140617
  Transmission Date: 20141212
  Serious: Yes (Life-Threatening)
  Sender: FDA-Public Use
  Company Number: US-BAYER-2014-085930

PATIENT
  Age: 38 Year
  Sex: Female

DRUGS (3)
  1. CIPROFLOXACIN BETAIN [Suspect]
     Indication: ENTERITIS INFECTIOUS
     Route: 042
  2. CIPROFLOXACIN BETAIN [Suspect]
     Indication: SMALL INTESTINAL OBSTRUCTION
  3. POTASSIUM [Concomitant]
     Indication: HYPOKALAEMIA
     Route: 042

REACTIONS (1)
  - Torsade de pointes [Recovered/Resolved]
